FAERS Safety Report 7961066-5 (Version None)
Quarter: 2011Q4

REPORT INFORMATION
  Report Type: 
  Country: None (occurrence: None)
  Receive Date: 20111121
  Receipt Date: 20111005
  Transmission Date: 20120403
  Serious: Yes (Other)
  Sender: FDA-Public Use
  Company Number: 1000024476

PATIENT
  Sex: Male

DRUGS (1)
  1. VIIBRYD [Suspect]
     Dates: start: 20110101, end: 20110101

REACTIONS (2)
  - MANIA [None]
  - CRYING [None]
